FAERS Safety Report 15810266 (Version 2)
Quarter: 2022Q1

REPORT INFORMATION
  Report Type: Spontaneous
  Country: US (occurrence: None)
  Receive Date: 20190111
  Receipt Date: 20220110
  Transmission Date: 20220423
  Serious: No
  Sender: FDA-Public Use
  Company Number: US-ROCHE-2180004

PATIENT
  Age: 85 Year
  Sex: Female

DRUGS (3)
  1. RITUXAN [Suspect]
     Active Substance: RITUXIMAB
     Indication: Chronic lymphocytic leukaemia
     Route: 065
  2. IDELALISIB [Suspect]
     Active Substance: IDELALISIB
     Indication: Chronic lymphocytic leukaemia
     Dosage: ONGOING:YES
     Route: 048
     Dates: start: 20150514
  3. BACTRIM [Concomitant]
     Active Substance: SULFAMETHOXAZOLE\TRIMETHOPRIM
     Dosage: ONGOING: UNKNOWN
     Dates: start: 20150514

REACTIONS (2)
  - Back pain [Not Recovered/Not Resolved]
  - Oxygen therapy [Recovered/Resolved]

NARRATIVE: CASE EVENT DATE: 20150514
